FAERS Safety Report 6341442-7 (Version None)
Quarter: 2009Q3

REPORT INFORMATION
  Report Type: 
  Country: None (occurrence: None)
  Receive Date: 20090904
  Receipt Date: 20090825
  Transmission Date: 20100115
  Serious: Yes (Hospitalization)
  Sender: FDA-Public Use
  Company Number: IT-MYLANLABS-2009S1015121

PATIENT
  Sex: Male

DRUGS (3)
  1. AMOXICILLIN TRIHYDRATE [Suspect]
     Indication: DRUG USE FOR UNKNOWN INDICATION
  2. OMEPRAZOLE [Suspect]
     Indication: DRUG USE FOR UNKNOWN INDICATION
  3. CLARITHROMYCIN [Suspect]
     Indication: DRUG USE FOR UNKNOWN INDICATION

REACTIONS (1)
  - DELIRIUM [None]
